FAERS Safety Report 25508875 (Version 2)
Quarter: 2025Q3

REPORT INFORMATION
  Report Type: Spontaneous
  Country: EU (occurrence: EU)
  Receive Date: 20250703
  Receipt Date: 20250708
  Transmission Date: 20251020
  Serious: Yes (Other)
  Sender: AUROBINDO
  Company Number: EU-SEMPA-2025-004526

PATIENT
  Age: 37 Year
  Sex: Female
  Weight: 71 kg

DRUGS (3)
  1. SERTRALINE HYDROCHLORIDE [Suspect]
     Active Substance: SERTRALINE HYDROCHLORIDE
     Indication: Premenstrual syndrome
     Dosage: 100 MILLIGRAM, ONCE A DAY
     Route: 065
     Dates: start: 20241101, end: 20250516
  2. SERTRALINE HYDROCHLORIDE [Suspect]
     Active Substance: SERTRALINE HYDROCHLORIDE
     Indication: Burnout syndrome
  3. SERTRALINE HYDROCHLORIDE [Suspect]
     Active Substance: SERTRALINE HYDROCHLORIDE
     Indication: Depressed mood

REACTIONS (5)
  - Faecaloma [Recovered/Resolved]
  - Electric shock sensation [Not Recovered/Not Resolved]
  - Abnormal weight gain [Recovering/Resolving]
  - Constipation [Recovered/Resolved]
  - Product use in unapproved indication [Unknown]

NARRATIVE: CASE EVENT DATE: 20241101
